FAERS Safety Report 26010402 (Version 1)
Quarter: 2025Q4

REPORT INFORMATION
  Report Type: Other
  Country: GB (occurrence: GB)
  Receive Date: 20251107
  Receipt Date: 20251107
  Transmission Date: 20260117
  Serious: Yes (Other)
  Sender: GLENMARK
  Company Number: None

PATIENT
  Age: 56 Year
  Sex: Female
  Weight: 63 kg

DRUGS (1)
  1. ROSUVASTATIN CALCIUM [Suspect]
     Active Substance: ROSUVASTATIN CALCIUM
     Indication: Blood cholesterol increased
     Dosage: 5 MILLIGRAM (5MG 3 TIMES PER WEEK)
     Route: 065

REACTIONS (2)
  - Tendon rupture [Not Recovered/Not Resolved]
  - Tendon pain [Unknown]

NARRATIVE: CASE EVENT DATE: 20250301
